FAERS Safety Report 9203195 (Version 2)
Quarter: 2013Q2

REPORT INFORMATION
  Report Type: Spontaneous
  Country: US (occurrence: US)
  Receive Date: 20130402
  Receipt Date: 20130403
  Transmission Date: 20140414
  Serious: No
  Sender: FDA-Public Use
  Company Number: US-009507513-1303USA014423

PATIENT
  Age: 46 Year
  Sex: Female

DRUGS (1)
  1. DULERA [Suspect]
     Dosage: UNK

REACTIONS (1)
  - Drug ineffective [Unknown]
